FAERS Safety Report 6961776-2 (Version None)
Quarter: 2010Q3

REPORT INFORMATION
  Report Type: 
  Country: None (occurrence: None)
  Receive Date: 20100901
  Receipt Date: 20100827
  Transmission Date: 20110219
  Serious: Yes (Hospitalization, Other)
  Sender: FDA-Public Use
  Company Number: US-MERCK-1005USA00488

PATIENT
  Age: 59 Year
  Sex: Female
  Weight: 68 kg

DRUGS (7)
  1. FOSAMAX [Suspect]
     Indication: BONE DISORDER
     Route: 048
     Dates: start: 20011228, end: 20060501
  2. FOSAMAX [Suspect]
     Indication: OSTEOPOROSIS
     Route: 048
     Dates: start: 20011228, end: 20060501
  3. FOSAMAX PLUS D [Suspect]
     Indication: BONE DISORDER
     Route: 048
     Dates: start: 20060525, end: 20090701
  4. FOSAMAX PLUS D [Suspect]
     Indication: OSTEOPOROSIS
     Route: 048
     Dates: start: 20060525, end: 20090701
  5. PREMARIN [Concomitant]
     Indication: HORMONE REPLACEMENT THERAPY
     Route: 048
     Dates: start: 19950601
  6. PREMARIN [Concomitant]
     Route: 048
     Dates: start: 19990601
  7. PREMARIN [Concomitant]
     Route: 048
     Dates: start: 20080701

REACTIONS (37)
  - APHASIA [None]
  - APHTHOUS STOMATITIS [None]
  - ARTHRALGIA [None]
  - BACK PAIN [None]
  - BASAL GANGLIA INFARCTION [None]
  - BONE PAIN [None]
  - CHEST PAIN [None]
  - DENTAL CARIES [None]
  - DEPRESSION [None]
  - DRY MOUTH [None]
  - DYSLIPIDAEMIA [None]
  - DYSPHAGIA [None]
  - FIBROCYSTIC BREAST DISEASE [None]
  - GASTROOESOPHAGEAL REFLUX DISEASE [None]
  - GRANULOMA [None]
  - HEADACHE [None]
  - HYPERTENSIVE HEART DISEASE [None]
  - IMPAIRED HEALING [None]
  - INCREASED APPETITE [None]
  - INSOMNIA [None]
  - LIMB DISCOMFORT [None]
  - MICTURITION URGENCY [None]
  - MORTON'S NEUROMA [None]
  - MYALGIA [None]
  - OBESITY [None]
  - OEDEMA PERIPHERAL [None]
  - OROPHARYNGEAL BLISTERING [None]
  - OSTEONECROSIS OF JAW [None]
  - PAIN [None]
  - PAIN IN EXTREMITY [None]
  - PALPITATIONS [None]
  - POLYMYALGIA RHEUMATICA [None]
  - RASH [None]
  - SINUS BRADYCARDIA [None]
  - SINUS DISORDER [None]
  - URINARY INCONTINENCE [None]
  - VARICOSE VEIN [None]
